FAERS Safety Report 11241046 (Version 1)
Quarter: 2015Q3

REPORT INFORMATION
  Report Type: Spontaneous
  Country: JP (occurrence: JP)
  Receive Date: 20150706
  Receipt Date: 20150706
  Transmission Date: 20151125
  Serious: Yes (Hospitalization, Other)
  Sender: FDA-Public Use
  Company Number: JP-GLAXOSMITHKLINE-JP2015JPN092452

PATIENT
  Age: 88 Year
  Sex: Female

DRUGS (1)
  1. VALTREX [Suspect]
     Active Substance: VALACYCLOVIR HYDROCHLORIDE
     Dosage: 1000 MG, TID
     Route: 048

REACTIONS (6)
  - Renal impairment [Unknown]
  - Overdose [Unknown]
  - Acute kidney injury [Unknown]
  - Ill-defined disorder [Recovering/Resolving]
  - Depressed level of consciousness [Recovering/Resolving]
  - Encephalopathy [Unknown]
